FAERS Safety Report 9274393 (Version 1)
Quarter: 2013Q2

REPORT INFORMATION
  Report Type: Spontaneous
  Country: US (occurrence: US)
  Receive Date: 20130506
  Receipt Date: 20130506
  Transmission Date: 20140414
  Serious: No
  Sender: FDA-Public Use
  Company Number: US-ALEXION-A201201623

PATIENT
  Sex: 0

DRUGS (1)
  1. SOLIRIS 300MG [Suspect]
     Dosage: UNK
     Route: 042
     Dates: start: 201204

REACTIONS (2)
  - Therapeutic response decreased [Unknown]
  - Haemolysis [Unknown]
